FAERS Safety Report 12040053 (Version 1)
Quarter: 2016Q1

REPORT INFORMATION
  Report Type: Spontaneous
  Country: US (occurrence: US)
  Receive Date: 20160208
  Receipt Date: 20160208
  Transmission Date: 20160526
  Serious: No
  Sender: FDA-Public Use
  Company Number: US-AMAG PHARMACEUTICALS, INC.-AMAG201500987

PATIENT
  Age: 31 Year
  Sex: Female
  Weight: 90.4 kg

DRUGS (1)
  1. MAKENA [Suspect]
     Active Substance: HYDROXYPROGESTERONE CAPROATE
     Indication: PREMATURE DELIVERY
     Dosage: UNK
     Dates: start: 20150720

REACTIONS (4)
  - Dry mouth [Unknown]
  - Nausea [Unknown]
  - Medication error [Recovered/Resolved]
  - Orgasmic sensation decreased [Unknown]

NARRATIVE: CASE EVENT DATE: 20150727
